FAERS Safety Report 4915328-6 (Version None)
Quarter: 2006Q1

REPORT INFORMATION
  Report Type: 
  Country: None (occurrence: None)
  Receive Date: 20060217
  Receipt Date: 20060207
  Transmission Date: 20060701
  Serious: Yes (Hospitalization)
  Sender: FDA-Public Use
  Company Number: FR-GLAXOSMITHKLINE-B0411887A

PATIENT
  Age: 63 Year
  Sex: Male

DRUGS (11)
  1. AUGMENTIN '125' [Suspect]
     Indication: ESCHERICHIA URINARY TRACT INFECTION
     Route: 048
     Dates: start: 20051118
  2. ALLOPURINOL [Suspect]
     Dosage: 300MG PER DAY
     Route: 048
     Dates: end: 20051207
  3. FUROSEMIDE [Suspect]
     Dosage: 40MG PER DAY
     Route: 048
     Dates: end: 20051207
  4. KETEK [Suspect]
     Indication: BRONCHITIS
     Route: 048
     Dates: start: 20051108
  5. COVERSYL [Suspect]
     Dosage: 4MG PER DAY
     Route: 048
     Dates: end: 20051207
  6. MEDIATOR [Suspect]
     Dosage: 450MG PER DAY
     Route: 048
     Dates: end: 20051207
  7. SOTALOL HCL [Concomitant]
     Route: 065
  8. DIAMICRON [Concomitant]
     Route: 065
  9. ZOCOR [Concomitant]
     Route: 065
  10. OGAST [Concomitant]
     Route: 065
  11. PREVISCAN [Concomitant]
     Route: 065
     Dates: end: 20051215

REACTIONS (4)
  - ASTHENIA [None]
  - BLOOD CREATININE INCREASED [None]
  - HEPATIC STEATOSIS [None]
  - RENAL FAILURE ACUTE [None]
